FAERS Safety Report 5393031-9 (Version None)
Quarter: 2007Q3

REPORT INFORMATION
  Report Type: 
  Country: None (occurrence: None)
  Receive Date: 20070719
  Receipt Date: 20070705
  Transmission Date: 20080115
  Serious: Yes (Death, Other)
  Sender: FDA-Public Use
  Company Number: 2007SP014085

PATIENT
  Age: 70 Year
  Sex: Male

DRUGS (45)
  1. RINDERON-VG (BETAMETHASONE VALERATE/GENTAMICIN SULFATE) (BETAMETHASONE [Suspect]
     Indication: RASH
     Dates: start: 20060918
  2. FLUMARIN (FLOMOXEF SODIUM) [Suspect]
     Indication: INFECTION
     Dosage: 2 GM; IV
     Route: 042
     Dates: start: 20060917, end: 20060917
  3. FINIBAX [Suspect]
     Indication: INFECTION
     Dosage: 0.5 GM;QD;IV
     Route: 042
     Dates: start: 20060919, end: 20060920
  4. PHENOBARBITAL (PENOBARBITAL) [Suspect]
     Indication: CONVULSION
     Dosage: 100 MG;QD;PO
     Route: 048
     Dates: start: 20060828, end: 20060923
  5. SPELEAR (FUDOSTEINE) [Suspect]
     Indication: SPUTUM RETENTION
     Dosage: 200 MG;QD;PO
     Route: 048
     Dates: start: 20060914, end: 20060924
  6. TEGRETOL [Suspect]
     Indication: WOUND COMPLICATION
     Dosage: 100 MG,QD;PO
     Route: 048
     Dates: start: 20060922, end: 20060923
  7. LOXONIN (LOXOPROFEN) [Suspect]
     Indication: INTERCOSTAL NEURALGIA
     Dosage: 180 MG;QD;PO; 180 MG;QD;PO
     Route: 048
     Dates: start: 20060918, end: 20060920
  8. LOXONIN (LOXOPROFEN) [Suspect]
     Indication: INTERCOSTAL NEURALGIA
     Dosage: 180 MG;QD;PO; 180 MG;QD;PO
     Route: 048
     Dates: start: 20060923, end: 20060924
  9. MAGMITT [Concomitant]
  10. CERCINE [Concomitant]
  11. AMOBAN [Concomitant]
  12. MYSLEE [Concomitant]
  13. ROHYPNOL [Concomitant]
  14. URETID [Concomitant]
  15. SELBEX [Concomitant]
  16. SENNOSIDE [Concomitant]
  17. LANSOPRAZOLE [Concomitant]
  18. NAPROXEN [Concomitant]
  19. ASPIRIN [Concomitant]
  20. POLARAMINE [Concomitant]
  21. MOBIC [Concomitant]
  22. DISTILLED WATER [Concomitant]
  23. VOLTAREN [Concomitant]
  24. KETOPROFEN [Concomitant]
  25. LAXOBERON [Concomitant]
  26. WAKOBITAL [Concomitant]
  27. ALBUMIN (HUMAN) [Concomitant]
  28. HUMULIN 70/30 [Concomitant]
  29. ANAPEINE (ROPIVACINE) [Concomitant]
  30. AMINOTRIPA 1 [Concomitant]
  31. AMNOTRIPA 2 [Concomitant]
  32. AMINOFLUID [Concomitant]
  33. OMEPRAZOLE [Concomitant]
  34. CATACLOT [Concomitant]
  35. SOL MEDROL [Concomitant]
  36. SOLDEM 3A [Concomitant]
  37. MULTIVITAMIN ADDITIVE [Concomitant]
  38. NOVO HEPARIN [Concomitant]
  39. PANSPORIN [Concomitant]
  40. PERDIPINE [Concomitant]
  41. POTACOL-R [Concomitant]
  42. RADICUT [Concomitant]
  43. LOW-MOLECULAR DEXTRAN L [Concomitant]
  44. BISOLVON [Concomitant]
  45. AMOBAN [Concomitant]

REACTIONS (19)
  - ALANINE AMINOTRANSFERASE INCREASED [None]
  - BLOOD BILIRUBIN INCREASED [None]
  - BLOOD PRESSURE DECREASED [None]
  - DEPRESSED LEVEL OF CONSCIOUSNESS [None]
  - ERYTHEMA ANNULARE [None]
  - FIBRIN DEGRADATION PRODUCTS INCREASED [None]
  - HAEMODIALYSIS [None]
  - HEMIPLEGIA [None]
  - INTERNATIONAL NORMALISED RATIO INCREASED [None]
  - LUNG NEOPLASM MALIGNANT [None]
  - PARALYSIS [None]
  - PLATELET COUNT DECREASED [None]
  - PNEUMONIA [None]
  - PYREXIA [None]
  - SEPSIS [None]
  - SHOCK [None]
  - STAPHYLOCOCCAL INFECTION [None]
  - STEVENS-JOHNSON SYNDROME [None]
  - WHITE BLOOD CELL COUNT DECREASED [None]
